FAERS Safety Report 22367676 (Version 1)
Quarter: 2023Q2

REPORT INFORMATION
  Report Type: Spontaneous
  Country: US (occurrence: None)
  Receive Date: 20230525
  Receipt Date: 20230525
  Transmission Date: 20230722
  Serious: Yes (Hospitalization)
  Sender: FDA-Public Use
  Company Number: None

PATIENT
  Age: 59 Year

DRUGS (1)
  1. BENLYSTA [Suspect]
     Active Substance: BELIMUMAB
     Indication: Systemic lupus erythematosus
     Dosage: OTHER FREQUENCY : OTHER;?
     Route: 058
     Dates: start: 201912

REACTIONS (3)
  - Urinary tract infection [None]
  - Kidney infection [None]
  - Therapy interrupted [None]

NARRATIVE: CASE EVENT DATE: 20220508
